FAERS Safety Report 17186459 (Version 2)
Quarter: 2019Q4

REPORT INFORMATION
  Report Type: Report from Study
  Country: CA (occurrence: CA)
  Receive Date: 20191220
  Receipt Date: 20191226
  Transmission Date: 20200122
  Serious: Yes (Other)
  Sender: FDA-Public Use
  Company Number: CA-JNJFOC-20190915553

PATIENT
  Age: 56 Year
  Sex: Male
  Weight: 64 kg

DRUGS (1)
  1. REMICADE [Suspect]
     Active Substance: INFLIXIMAB
     Indication: CROHN^S DISEASE
     Route: 042
     Dates: start: 20161124

REACTIONS (7)
  - Nasopharyngitis [Recovered/Resolved]
  - Scar [Unknown]
  - Arthropod bite [Unknown]
  - Neoplasm malignant [Unknown]
  - Infusion related reaction [Not Recovered/Not Resolved]
  - Abdominal pain [Recovered/Resolved]
  - Oral herpes [Unknown]

NARRATIVE: CASE EVENT DATE: 201908
